FAERS Safety Report 10700419 (Version 1)
Quarter: 2015Q1

REPORT INFORMATION
  Report Type: Spontaneous
  Country: FI (occurrence: None)
  Receive Date: 20150107
  Receipt Date: 20150107
  Transmission Date: 20150721
  Serious: Yes (Other)
  Sender: FDA-Public Use
  Company Number: 2693226

PATIENT
  Age: 19 Year
  Sex: Male

DRUGS (4)
  1. NORADRENALINE TARTRATE [Suspect]
     Active Substance: NOREPINEPHRINE BITARTRATE
     Indication: HYPOTENSION
     Route: 041
  2. ROCURONIUM [Concomitant]
     Active Substance: ROCURONIUM BROMIDE
  3. PROPOFOL. [Suspect]
     Active Substance: PROPOFOL
     Indication: SEDATION
     Route: 041
  4. FENTANYL. [Concomitant]
     Active Substance: FENTANYL

REACTIONS (11)
  - Right ventricular failure [None]
  - Propofol infusion syndrome [None]
  - Troponin T increased [None]
  - Cardiomegaly [None]
  - Blood lactic acid increased [None]
  - Blood creatinine increased [None]
  - Hypotension [None]
  - Skin graft [None]
  - Rhabdomyolysis [None]
  - Oliguria [None]
  - Electrocardiogram abnormal [None]
